FAERS Safety Report 17929389 (Version 1)
Quarter: 2020Q2

REPORT INFORMATION
  Report Type: Spontaneous
  Country: US (occurrence: US)
  Receive Date: 20200623
  Receipt Date: 20200623
  Transmission Date: 20200714
  Serious: Yes (Death)
  Sender: FDA-Public Use
  Company Number: None

PATIENT
  Age: 76 Year
  Sex: Male
  Weight: 70 kg

DRUGS (1)
  1. YESCARTA [Suspect]
     Active Substance: AXICABTAGENE CILOLEUCEL
     Indication: DIFFUSE LARGE B-CELL LYMPHOMA
     Route: 042
     Dates: start: 20200331, end: 20200331

REACTIONS (6)
  - Hepatic mass [None]
  - Aspiration [None]
  - Disease progression [None]
  - Bile duct obstruction [None]
  - Abdominal mass [None]
  - Respiratory failure [None]

NARRATIVE: CASE EVENT DATE: 20200331
